FAERS Safety Report 9292932 (Version 1)
Quarter: 2013Q2

REPORT INFORMATION
  Report Type: Spontaneous
  Country: US (occurrence: US)
  Receive Date: 20130516
  Receipt Date: 20130516
  Transmission Date: 20140414
  Serious: No
  Sender: FDA-Public Use
  Company Number: US-PFIZER INC-2013146443

PATIENT
  Age: 10 Year
  Sex: Male
  Weight: 39.91 kg

DRUGS (1)
  1. GENOTROPIN [Suspect]
     Indication: FAILURE TO THRIVE
     Dosage: 1.4 MG, DAILY
     Dates: start: 201303, end: 201304

REACTIONS (1)
  - Burning sensation [Recovered/Resolved]
